FAERS Safety Report 19581892 (Version 1)
Quarter: 2021Q3

REPORT INFORMATION
  Report Type: Spontaneous
  Country: FR (occurrence: FR)
  Receive Date: 20210719
  Receipt Date: 20210719
  Transmission Date: 20211014
  Serious: Yes (Death, Hospitalization, Other)
  Sender: FDA-Public Use
  Company Number: FR-REGENERON PHARMACEUTICALS, INC.-2021-69578

PATIENT

DRUGS (1)
  1. LIBTAYO [Suspect]
     Active Substance: CEMIPLIMAB-RWLC
     Indication: SQUAMOUS CELL CARCINOMA
     Dosage: UNK
     Route: 065
     Dates: start: 2019

REACTIONS (8)
  - Acute kidney injury [Unknown]
  - Renal transplant failure [Unknown]
  - Abdominal pain [Unknown]
  - Septic shock [Fatal]
  - Pyrexia [Unknown]
  - Peritonitis [Fatal]
  - Hypotension [Unknown]
  - Cytokine storm [Unknown]

NARRATIVE: CASE EVENT DATE: 2019
